FAERS Safety Report 18269322 (Version 1)
Quarter: 2020Q3

REPORT INFORMATION
  Report Type: Spontaneous
  Country: FR (occurrence: FR)
  Receive Date: 20200915
  Receipt Date: 20200915
  Transmission Date: 20201103
  Serious: Yes (Hospitalization)
  Sender: FDA-Public Use
  Company Number: FR-JAZZ-2020-FR-006322

PATIENT

DRUGS (6)
  1. CRESEMBA [Suspect]
     Active Substance: ISAVUCONAZONIUM SULFATE
     Indication: MUCORMYCOSIS
     Dosage: 200 MILLIGRAM
     Route: 048
     Dates: end: 20200429
  2. LEVOFLOXACINE [Suspect]
     Active Substance: LEVOFLOXACIN
     Indication: VASCULAR DEVICE INFECTION
     Dosage: UNKNOWN DOSE
     Dates: start: 20200421, end: 20200429
  3. FOSCAVIR [Suspect]
     Active Substance: FOSCARNET SODIUM
     Indication: HERPES SIMPLEX
     Dosage: 4 GRAM
     Route: 042
     Dates: start: 20200422, end: 20200426
  4. VANCOMYCINE [Suspect]
     Active Substance: VANCOMYCIN
     Indication: VASCULAR DEVICE INFECTION
     Dosage: UNKNOWN DOSE
     Route: 042
     Dates: start: 20200424, end: 20200427
  5. KIDROLASE [Suspect]
     Active Substance: ASPARAGINASE
     Indication: ACUTE LYMPHOCYTIC LEUKAEMIA
     Dosage: UNKNOWN DOSE
     Route: 042
     Dates: start: 20200411, end: 20200421
  6. PIPERACILLINE SODIQUE [Suspect]
     Active Substance: PIPERACILLIN
     Indication: VASCULAR DEVICE INFECTION
     Dosage: 12 GRAM (4G X3/J)
     Route: 042
     Dates: start: 20200418

REACTIONS (4)
  - Blood bilirubin increased [Recovering/Resolving]
  - Blood alkaline phosphatase increased [Not Recovered/Not Resolved]
  - Cell death [Not Recovered/Not Resolved]
  - Gamma-glutamyltransferase increased [Not Recovered/Not Resolved]

NARRATIVE: CASE EVENT DATE: 20200425
